FAERS Safety Report 4802275-3 (Version None)
Quarter: 2005Q4

REPORT INFORMATION
  Report Type: 
  Country: None (occurrence: None)
  Receive Date: 20051012
  Receipt Date: 20050930
  Transmission Date: 20060501
  Serious: Yes (Other)
  Sender: FDA-Public Use
  Company Number: 2005137822

PATIENT
  Age: 28 Year
  Sex: Female
  Weight: 45.8133 kg

DRUGS (2)
  1. TIKOSYN [Suspect]
     Indication: ATRIAL FIBRILLATION
     Dosage: 500 MCG (250 MCG, BID INTERVAL: EVERY DAY), ORAL
     Route: 048
  2. WARFARIN SODIUM [Concomitant]

REACTIONS (3)
  - DIABETES MELLITUS [None]
  - HYPOACUSIS [None]
  - TINNITUS [None]
